FAERS Safety Report 25073130 (Version 5)
Quarter: 2025Q4

REPORT INFORMATION
  Report Type: Report from Study
  Country: US (occurrence: US)
  Receive Date: 20250313
  Receipt Date: 20251222
  Transmission Date: 20260118
  Serious: Yes (Other)
  Sender: ALEXION PHARMACEUTICALS
  Company Number: US-ASTRAZENECA-202503USA005214US

PATIENT
  Age: 66 Year
  Sex: Female

DRUGS (3)
  1. OLAPARIB [Suspect]
     Active Substance: OLAPARIB
     Indication: Fallopian tube cancer
     Dosage: TAKE 1 TABLET BY MOUTH 2 TIMES A DAY. TAKE WITH 150 MG TABLET FOR TOTAL DOSE OF 250 MG TWICE DAILY
     Route: 061
     Dates: start: 20250227
  2. OLAPARIB [Suspect]
     Active Substance: OLAPARIB
     Indication: Ovarian cancer
     Dosage: TAKE 1 TABLET BY MOUTH 2 TIMES A DAY. TAKE WITH 150 MG TABLET FOR TOTAL DOSE OF 250 MG TWICE DAILY
     Route: 061
     Dates: start: 202503
  3. OLAPARIB [Suspect]
     Active Substance: OLAPARIB
     Dosage: TAKE 1 TABLET BY MOUTH 2 TIMES A DAY. TAKE WITH 150 MG TABLET FOR TOTAL DOSE OF 250 MG TWICE DAILY
     Route: 061
     Dates: start: 20250227

REACTIONS (7)
  - Neuropathy peripheral [Unknown]
  - Pain [Unknown]
  - Fatigue [Recovering/Resolving]
  - Asthenia [Recovering/Resolving]
  - Dyspnoea [Unknown]
  - Mobility decreased [Unknown]
  - Arthralgia [Recovering/Resolving]
